FAERS Safety Report 16684768 (Version 3)
Quarter: 2019Q4

REPORT INFORMATION
  Report Type: Report from Study
  Country: US (occurrence: US)
  Receive Date: 20190808
  Receipt Date: 20191007
  Transmission Date: 20200122
  Serious: Yes (Hospitalization)
  Sender: FDA-Public Use
  Company Number: US-PFIZER INC-2018312245

PATIENT
  Age: 69 Year
  Sex: Female
  Weight: 74.83 kg

DRUGS (4)
  1. PLACEBO [Suspect]
     Active Substance: UNSPECIFIED INGREDIENT
     Indication: IMMUNISATION
     Dosage: SINGLE DOSE
     Route: 030
     Dates: start: 20180620, end: 20180620
  2. OXYCODONE [Suspect]
     Active Substance: OXYCODONE
     Indication: PAIN
     Dosage: 10 MG (1 TABLET), EVERY 4 HOURS (Q4H), AS NEEDED
     Route: 048
     Dates: start: 20180708, end: 20180709
  3. HYDROMORPHONE HYDROCHLORIDE. [Suspect]
     Active Substance: HYDROMORPHONE HYDROCHLORIDE
     Indication: PAIN
     Dosage: 0.5 MG, EVERY 1 HOUR (Q1H), AS NEEDED
     Route: 042
     Dates: start: 20180709, end: 20180709
  4. VALIUM [Suspect]
     Active Substance: DIAZEPAM
     Indication: PAIN
     Dosage: 5 MG (1 TABLET), EVERY 6 HOURS (Q6H), AS NEEDED
     Route: 048
     Dates: start: 20180709, end: 20180709

REACTIONS (1)
  - Metabolic encephalopathy [Recovered/Resolved]

NARRATIVE: CASE EVENT DATE: 20180709
